FAERS Safety Report 6244316-5 (Version None)
Quarter: 2009Q2

REPORT INFORMATION
  Report Type: 
  Country: None (occurrence: None)
  Receive Date: 20090623
  Receipt Date: 20090623
  Transmission Date: 20091009
  Serious: Yes (Hospitalization)
  Sender: FDA-Public Use
  Company Number: None

PATIENT
  Age: 28 Year
  Sex: Male
  Weight: 151.05 kg

DRUGS (1)
  1. TRAZODONE HCL [Suspect]
     Indication: INSOMNIA
     Dates: start: 20090508, end: 20090508

REACTIONS (1)
  - ANGIOEDEMA [None]
